FAERS Safety Report 9653551 (Version 1)
Quarter: 2013Q4

REPORT INFORMATION
  Report Type: Spontaneous
  Country: US (occurrence: None)
  Receive Date: 20131028
  Receipt Date: 20131028
  Transmission Date: 20140711
  Serious: Yes (Life-Threatening, Hospitalization, Disabling, Other)
  Sender: FDA-Public Use
  Company Number: None

PATIENT
  Age: 48 Year
  Sex: Female
  Weight: 71.22 kg

DRUGS (2)
  1. ADIPEX [Suspect]
     Indication: OBESITY
     Route: 048
     Dates: start: 20100105, end: 20110706
  2. PROZAC [Suspect]
     Route: 048

REACTIONS (7)
  - Psychotic disorder [None]
  - Malaise [None]
  - Alopecia [None]
  - Lacunar infarction [None]
  - Chronic obstructive pulmonary disease [None]
  - Syncope [None]
  - Job dissatisfaction [None]
